FAERS Safety Report 4490485-7 (Version None)
Quarter: 2004Q4

REPORT INFORMATION
  Report Type: 
  Country: None (occurrence: None)
  Receive Date: 20041102
  Receipt Date: 20041025
  Transmission Date: 20050328
  Serious: Yes (Other)
  Sender: FDA-Public Use
  Company Number: PHBS2004NL14318

PATIENT
  Age: 69 Year
  Sex: Female

DRUGS (3)
  1. EXELON [Suspect]
     Dosage: 6 MG BID
     Route: 048
     Dates: start: 20040813
  2. RISPERDAL [Concomitant]
     Dosage: 1 MG/DAY
  3. CIPRAMIL [Concomitant]
     Dosage: 20 MG/DAY

REACTIONS (2)
  - ANGIONEUROTIC OEDEMA [None]
  - OEDEMA [None]
